FAERS Safety Report 10140599 (Version 2)
Quarter: 2015Q1

REPORT INFORMATION
  Report Type: Other
  Country: US (occurrence: US)
  Receive Date: 20140429
  Receipt Date: 20150220
  Transmission Date: 20150720
  Serious: Yes (Hospitalization, Other)
  Sender: FDA-Public Use
  Company Number: US-GSKPPD-2014GSK042892

PATIENT
  Age: 41 Year
  Sex: Female

DRUGS (9)
  1. AVANDIA [Suspect]
     Active Substance: ROSIGLITAZONE MALEATE
     Indication: DIABETES MELLITUS
     Dosage: DATES OF AVANDIA USE COULD NOT BE CONFIRMED IN RECORDS REVIEWED.
     Route: 048
  2. HYDRALAZINE [Suspect]
     Active Substance: HYDRALAZINE HYDROCHLORIDE
     Route: 048
  3. ENALAPRIL [Concomitant]
     Active Substance: ENALAPRIL
     Route: 048
  4. NORVASC [Concomitant]
     Active Substance: AMLODIPINE BESYLATE
     Route: 048
  5. ENTERIC-COATED ASPIRIN [Concomitant]
     Active Substance: ASPIRIN
     Route: 048
  6. LASIX [Concomitant]
     Active Substance: FUROSEMIDE
     Route: 048
  7. HCTZ [Concomitant]
     Active Substance: HYDROCHLOROTHIAZIDE
     Route: 048
  8. METOPROLOL [Concomitant]
     Active Substance: METOPROLOL
     Route: 048
  9. CLONIDINE. [Concomitant]
     Active Substance: CLONIDINE
     Route: 048

REACTIONS (2)
  - Myocardial infarction [Unknown]
  - Cardiac failure congestive [Recovered/Resolved]

NARRATIVE: CASE EVENT DATE: 20071118
